FAERS Safety Report 10073198 (Version 1)
Quarter: 2014Q2

REPORT INFORMATION
  Report Type: Spontaneous
  Country: CO (occurrence: CO)
  Receive Date: 20140411
  Receipt Date: 20140411
  Transmission Date: 20141212
  Serious: Yes (Death)
  Sender: FDA-Public Use
  Company Number: CO-PFIZER INC-2014102351

PATIENT
  Age: 89 Year
  Sex: Female

DRUGS (1)
  1. ZOLOF [Suspect]
     Dosage: 50 MG, 1X/DAY
     Route: 048

REACTIONS (1)
  - Death [Fatal]
